FAERS Safety Report 19287882 (Version 4)
Quarter: 2021Q3

REPORT INFORMATION
  Report Type: Report from Study
  Country: US (occurrence: US)
  Receive Date: 20210521
  Receipt Date: 20210910
  Transmission Date: 20211014
  Serious: Yes (Hospitalization, Other)
  Sender: FDA-Public Use
  Company Number: US-TAKEDA-US202015119

PATIENT
  Age: 38 Year
  Sex: Female

DRUGS (5)
  1. LANADELUMAB [Suspect]
     Active Substance: LANADELUMAB
     Indication: ADRENOGENITAL SYNDROME
     Dosage: 300 MILLIGRAM, Q2WEEKS
     Route: 058
     Dates: start: 20191217
  2. LANADELUMAB [Suspect]
     Active Substance: LANADELUMAB
     Indication: SWELLING
  3. LANADELUMAB [Suspect]
     Active Substance: LANADELUMAB
     Indication: MASS
     Dosage: 300 MILLIGRAM, Q2WEEKS
     Route: 058
     Dates: start: 20191226
  4. LANADELUMAB [Suspect]
     Active Substance: LANADELUMAB
     Indication: SINUSITIS
     Dosage: 300 MILLIGRAM, Q2WEEKS
     Route: 058
     Dates: start: 201912
  5. LANADELUMAB [Suspect]
     Active Substance: LANADELUMAB
     Indication: IMMUNE SYSTEM DISORDER
     Dosage: 300 MILLIGRAM, Q2WEEKS
     Route: 058
     Dates: start: 20191216

REACTIONS (3)
  - Anxiety [Unknown]
  - Intracranial aneurysm [Unknown]
  - Hereditary angioedema [Recovered/Resolved]

NARRATIVE: CASE EVENT DATE: 20200424
